FAERS Safety Report 7142167-0 (Version None)
Quarter: 2010Q4

REPORT INFORMATION
  Report Type: 
  Country: None (occurrence: None)
  Receive Date: 20101207
  Receipt Date: 20101124
  Transmission Date: 20110411
  Serious: Yes (Hospitalization, Other)
  Sender: FDA-Public Use
  Company Number: US-ROCHE-746048

PATIENT
  Age: 76 Year
  Sex: Male

DRUGS (5)
  1. BEVACIZUMAB [Suspect]
     Route: 042
     Dates: start: 20081119
  2. TOPOTECAN [Suspect]
     Route: 048
     Dates: start: 20081119
  3. HYDROCHLOROTHIAZIDE [Concomitant]
  4. OXYCODONE HCL [Concomitant]
  5. PREDNISONE [Concomitant]

REACTIONS (5)
  - HYPONATRAEMIA [None]
  - MENTAL STATUS CHANGES [None]
  - METASTASES TO HEART [None]
  - METASTASES TO LIVER [None]
  - PERIPHERAL ARTERY ANEURYSM [None]
